FAERS Safety Report 8485676-4 (Version None)
Quarter: 2012Q3

REPORT INFORMATION
  Report Type: 
  Country: None (occurrence: None)
  Receive Date: 20120703
  Receipt Date: 20120702
  Transmission Date: 20120928
  Serious: Yes (Life-Threatening, Other)
  Sender: FDA-Public Use
  Company Number: BE-ABBOTT-12P-013-0944731-00

PATIENT
  Age: 64 Year
  Sex: Female
  Weight: 70 kg

DRUGS (1)
  1. HUMIRA [Suspect]
     Indication: PSORIASIS
     Route: 058
     Dates: start: 20080314, end: 20100428

REACTIONS (3)
  - KERATOACANTHOMA [None]
  - OVARIAN CANCER METASTATIC [None]
  - DRUG INEFFECTIVE [None]
